FAERS Safety Report 11459329 (Version 1)
Quarter: 2015Q3

REPORT INFORMATION
  Report Type: Spontaneous
  Country: US (occurrence: US)
  Receive Date: 20150904
  Receipt Date: 20150904
  Transmission Date: 20151125
  Serious: No
  Sender: FDA-Public Use
  Company Number: US-JNJFOC-20150817767

PATIENT
  Age: 68 Year
  Sex: Male
  Weight: 112.04 kg

DRUGS (12)
  1. BAYER ASPIRIN [Concomitant]
     Active Substance: ASPIRIN
     Route: 048
  2. METFORMIN [Concomitant]
     Active Substance: METFORMIN HYDROCHLORIDE
     Indication: TYPE 2 DIABETES MELLITUS
     Route: 048
     Dates: start: 201406
  3. TAMSULOSIN [Concomitant]
     Active Substance: TAMSULOSIN
     Route: 048
     Dates: start: 2014
  4. DESONIDE. [Concomitant]
     Active Substance: DESONIDE
     Indication: ERYTHEMA
     Dosage: AS NEEDED
     Route: 065
     Dates: start: 201206
  5. KRILL OIL [Concomitant]
     Active Substance: DIETARY SUPPLEMENT
     Indication: CARDIOVASCULAR EVENT PROPHYLAXIS
     Route: 048
     Dates: start: 201206
  6. LEVOTHYROXINE. [Concomitant]
     Active Substance: LEVOTHYROXINE
     Indication: HYPOTHYROIDISM
     Route: 048
     Dates: start: 2014
  7. VITAMIN D2 [Concomitant]
     Active Substance: ERGOCALCIFEROL
     Indication: NUTRITIONAL SUPPLEMENTATION
     Route: 048
     Dates: start: 201206
  8. MILK THISTLE [Concomitant]
     Active Substance: MILK THISTLE
     Indication: PROPHYLAXIS
     Route: 048
     Dates: start: 1997
  9. INVOKANA [Suspect]
     Active Substance: CANAGLIFLOZIN
     Indication: TYPE 2 DIABETES MELLITUS
     Route: 048
     Dates: start: 20150803
  10. SUPER BETA PROSTATE [Concomitant]
     Active Substance: DIETARY SUPPLEMENT
     Indication: PROSTATOMEGALY
     Route: 048
     Dates: start: 2012
  11. TESTOSTERONE. [Concomitant]
     Active Substance: TESTOSTERONE
     Indication: BLOOD TESTOSTERONE DECREASED
     Route: 050
  12. MULTIVITAMINS [Concomitant]
     Active Substance: VITAMINS
     Indication: NUTRITIONAL SUPPLEMENTATION
     Route: 048
     Dates: start: 201308

REACTIONS (2)
  - Diarrhoea [Not Recovered/Not Resolved]
  - Glycosylated haemoglobin increased [Not Recovered/Not Resolved]

NARRATIVE: CASE EVENT DATE: 201508
